FAERS Safety Report 16653770 (Version 1)
Quarter: 2019Q3

REPORT INFORMATION
  Report Type: Spontaneous
  Country: US (occurrence: US)
  Receive Date: 20190619
  Receipt Date: 20190619
  Transmission Date: 20191004
  Serious: No
  Sender: FDA-Public Use
  Company Number: None

PATIENT
  Age: 68 Year
  Sex: Female

DRUGS (4)
  1. METOPROLOL. [Suspect]
     Active Substance: METOPROLOL
  2. CAPECITABINE TAB 500MG [Suspect]
     Active Substance: CAPECITABINE
     Route: 048
     Dates: start: 201904
  3. BENICAR [Suspect]
     Active Substance: OLMESARTAN MEDOXOMIL
  4. XELODA [Suspect]
     Active Substance: CAPECITABINE

REACTIONS (2)
  - Pigmentation disorder [None]
  - Peripheral swelling [None]

NARRATIVE: CASE EVENT DATE: 20190619
